FAERS Safety Report 26137089 (Version 1)
Quarter: 2025Q4

REPORT INFORMATION
  Report Type: Spontaneous
  Country: EU (occurrence: EU)
  Receive Date: 20251209
  Receipt Date: 20251209
  Transmission Date: 20260118
  Serious: Yes (Other)
  Sender: MYLAN
  Company Number: EU-EVENT-005005

PATIENT
  Age: 63 Year
  Sex: Female

DRUGS (56)
  1. LENALIDOMIDE [Suspect]
     Active Substance: LENALIDOMIDE
     Indication: Diffuse large B-cell lymphoma
     Dosage: 25 MILLIGRAM (1ST CYCLE)
  2. LENALIDOMIDE [Suspect]
     Active Substance: LENALIDOMIDE
     Dosage: 25 MILLIGRAM (1ST CYCLE)
  3. LENALIDOMIDE [Suspect]
     Active Substance: LENALIDOMIDE
     Dosage: 25 MILLIGRAM (1ST CYCLE)
     Route: 065
  4. LENALIDOMIDE [Suspect]
     Active Substance: LENALIDOMIDE
     Dosage: 25 MILLIGRAM (1ST CYCLE)
     Route: 065
  5. LENALIDOMIDE [Suspect]
     Active Substance: LENALIDOMIDE
     Dosage: 15 MILLIGRAM (3RD CYCLE)
  6. LENALIDOMIDE [Suspect]
     Active Substance: LENALIDOMIDE
     Dosage: 15 MILLIGRAM (3RD CYCLE)
  7. LENALIDOMIDE [Suspect]
     Active Substance: LENALIDOMIDE
     Dosage: 15 MILLIGRAM (3RD CYCLE)
     Route: 065
  8. LENALIDOMIDE [Suspect]
     Active Substance: LENALIDOMIDE
     Dosage: 15 MILLIGRAM (3RD CYCLE)
     Route: 065
  9. LENALIDOMIDE [Suspect]
     Active Substance: LENALIDOMIDE
     Dosage: 15 MILLIGRAM (4TH CYCLE)
  10. LENALIDOMIDE [Suspect]
     Active Substance: LENALIDOMIDE
     Dosage: 15 MILLIGRAM (4TH CYCLE)
  11. LENALIDOMIDE [Suspect]
     Active Substance: LENALIDOMIDE
     Dosage: 15 MILLIGRAM (4TH CYCLE)
     Route: 065
  12. LENALIDOMIDE [Suspect]
     Active Substance: LENALIDOMIDE
     Dosage: 15 MILLIGRAM (4TH CYCLE)
     Route: 065
  13. LENALIDOMIDE [Suspect]
     Active Substance: LENALIDOMIDE
     Dosage: 10 MILLIGRAM (6TH CYCLE)
  14. LENALIDOMIDE [Suspect]
     Active Substance: LENALIDOMIDE
     Dosage: 10 MILLIGRAM (6TH CYCLE)
  15. LENALIDOMIDE [Suspect]
     Active Substance: LENALIDOMIDE
     Dosage: 10 MILLIGRAM (6TH CYCLE)
     Route: 065
  16. LENALIDOMIDE [Suspect]
     Active Substance: LENALIDOMIDE
     Dosage: 10 MILLIGRAM (6TH CYCLE)
     Route: 065
  17. LENALIDOMIDE [Suspect]
     Active Substance: LENALIDOMIDE
     Dosage: 10 MILLIGRAM (9TH CYCLE)
  18. LENALIDOMIDE [Suspect]
     Active Substance: LENALIDOMIDE
     Dosage: 10 MILLIGRAM (9TH CYCLE)
     Route: 065
  19. LENALIDOMIDE [Suspect]
     Active Substance: LENALIDOMIDE
     Dosage: 10 MILLIGRAM (9TH CYCLE)
  20. LENALIDOMIDE [Suspect]
     Active Substance: LENALIDOMIDE
     Dosage: 10 MILLIGRAM (9TH CYCLE)
     Route: 065
  21. TAFASITAMAB [Suspect]
     Active Substance: TAFASITAMAB
     Indication: Diffuse large B-cell lymphoma
     Dosage: 25 MILLIGRAM (1ST CYCLE)
     Route: 065
  22. TAFASITAMAB [Suspect]
     Active Substance: TAFASITAMAB
     Dosage: 25 MILLIGRAM (1ST CYCLE)
  23. TAFASITAMAB [Suspect]
     Active Substance: TAFASITAMAB
     Dosage: 25 MILLIGRAM (1ST CYCLE)
  24. TAFASITAMAB [Suspect]
     Active Substance: TAFASITAMAB
     Dosage: 25 MILLIGRAM (1ST CYCLE)
     Route: 065
  25. TAFASITAMAB [Suspect]
     Active Substance: TAFASITAMAB
     Dosage: 15 MILLIGRAM (3RD CYCLE)
     Route: 065
  26. TAFASITAMAB [Suspect]
     Active Substance: TAFASITAMAB
     Dosage: 15 MILLIGRAM (3RD CYCLE)
  27. TAFASITAMAB [Suspect]
     Active Substance: TAFASITAMAB
     Dosage: 15 MILLIGRAM (3RD CYCLE)
  28. TAFASITAMAB [Suspect]
     Active Substance: TAFASITAMAB
     Dosage: 15 MILLIGRAM (3RD CYCLE)
     Route: 065
  29. TAFASITAMAB [Suspect]
     Active Substance: TAFASITAMAB
     Dosage: 15 MILLIGRAM (4TH CYCLE)
  30. TAFASITAMAB [Suspect]
     Active Substance: TAFASITAMAB
     Dosage: 15 MILLIGRAM (4TH CYCLE)
  31. TAFASITAMAB [Suspect]
     Active Substance: TAFASITAMAB
     Dosage: 15 MILLIGRAM (4TH CYCLE)
     Route: 065
  32. TAFASITAMAB [Suspect]
     Active Substance: TAFASITAMAB
     Dosage: 15 MILLIGRAM (4TH CYCLE)
     Route: 065
  33. TAFASITAMAB [Suspect]
     Active Substance: TAFASITAMAB
     Dosage: 10 MILLIGRAM (6TH CYCLE)
  34. TAFASITAMAB [Suspect]
     Active Substance: TAFASITAMAB
     Dosage: 10 MILLIGRAM (6TH CYCLE)
  35. TAFASITAMAB [Suspect]
     Active Substance: TAFASITAMAB
     Dosage: 10 MILLIGRAM (6TH CYCLE)
     Route: 065
  36. TAFASITAMAB [Suspect]
     Active Substance: TAFASITAMAB
     Dosage: 10 MILLIGRAM (6TH CYCLE)
     Route: 065
  37. TAFASITAMAB [Suspect]
     Active Substance: TAFASITAMAB
     Dosage: 10 MILLIGRAM (9TH CYCLE)
  38. TAFASITAMAB [Suspect]
     Active Substance: TAFASITAMAB
     Dosage: 10 MILLIGRAM (9TH CYCLE)
  39. TAFASITAMAB [Suspect]
     Active Substance: TAFASITAMAB
     Dosage: 10 MILLIGRAM (9TH CYCLE)
     Route: 065
  40. TAFASITAMAB [Suspect]
     Active Substance: TAFASITAMAB
     Dosage: 10 MILLIGRAM (9TH CYCLE)
     Route: 065
  41. TAFASITAMAB [Suspect]
     Active Substance: TAFASITAMAB
     Dosage: 10TH CYCLE
     Route: 065
  42. TAFASITAMAB [Suspect]
     Active Substance: TAFASITAMAB
     Dosage: 10TH CYCLE
  43. TAFASITAMAB [Suspect]
     Active Substance: TAFASITAMAB
     Dosage: 10TH CYCLE
  44. TAFASITAMAB [Suspect]
     Active Substance: TAFASITAMAB
     Dosage: 10TH CYCLE
     Route: 065
  45. TAFASITAMAB [Suspect]
     Active Substance: TAFASITAMAB
     Dosage: 13TH CYCLE
     Route: 065
  46. TAFASITAMAB [Suspect]
     Active Substance: TAFASITAMAB
     Dosage: 13TH CYCLE
  47. TAFASITAMAB [Suspect]
     Active Substance: TAFASITAMAB
     Dosage: 13TH CYCLE
  48. TAFASITAMAB [Suspect]
     Active Substance: TAFASITAMAB
     Dosage: 13TH CYCLE
     Route: 065
  49. TAFASITAMAB [Suspect]
     Active Substance: TAFASITAMAB
     Dosage: 19TH CYCLE
  50. TAFASITAMAB [Suspect]
     Active Substance: TAFASITAMAB
     Dosage: 19TH CYCLE
  51. TAFASITAMAB [Suspect]
     Active Substance: TAFASITAMAB
     Dosage: 19TH CYCLE
     Route: 065
  52. TAFASITAMAB [Suspect]
     Active Substance: TAFASITAMAB
     Dosage: 19TH CYCLE
     Route: 065
  53. TAFASITAMAB [Suspect]
     Active Substance: TAFASITAMAB
     Dosage: 25TH CYCLE
  54. TAFASITAMAB [Suspect]
     Active Substance: TAFASITAMAB
     Dosage: 25TH CYCLE
     Route: 065
  55. TAFASITAMAB [Suspect]
     Active Substance: TAFASITAMAB
     Dosage: 25TH CYCLE
  56. TAFASITAMAB [Suspect]
     Active Substance: TAFASITAMAB
     Dosage: 25TH CYCLE
     Route: 065

REACTIONS (11)
  - Gastrointestinal toxicity [Unknown]
  - Kyphosis [Unknown]
  - Splenomegaly [Unknown]
  - Vertebral wedging [Unknown]
  - Skin toxicity [Unknown]
  - Haematotoxicity [Unknown]
  - Campylobacter gastroenteritis [Unknown]
  - Myelosuppression [Unknown]
  - Neutropenia [Unknown]
  - Hepatic enzyme decreased [Unknown]
  - Respiratory tract infection [Unknown]

NARRATIVE: CASE EVENT DATE: 20231211
